FAERS Safety Report 25552119 (Version 3)
Quarter: 2025Q3

REPORT INFORMATION
  Report Type: Spontaneous
  Country: JP (occurrence: JP)
  Receive Date: 20250715
  Receipt Date: 20250729
  Transmission Date: 20251020
  Serious: Yes (Other)
  Sender: GLAXOSMITHKLINE
  Company Number: JP-GSK-JP2025JPN087939

PATIENT
  Age: 94 Year
  Sex: Male

DRUGS (9)
  1. DAPRODUSTAT [Suspect]
     Active Substance: DAPRODUSTAT
     Indication: Nephrogenic anaemia
  2. DAPRODUSTAT [Suspect]
     Active Substance: DAPRODUSTAT
  3. SILODOSIN [Concomitant]
     Active Substance: SILODOSIN
  4. ATORVASTATIN [Concomitant]
     Active Substance: ATORVASTATIN
  5. DONEPEZIL [Concomitant]
     Active Substance: DONEPEZIL
  6. THEOPHYLLINE [Concomitant]
     Active Substance: THEOPHYLLINE
  7. ASPIRIN [Concomitant]
     Active Substance: ASPIRIN
  8. ENALAPRIL [Concomitant]
     Active Substance: ENALAPRIL
  9. TETRAFERRIC TRICITRATE DECAHYDRATE [Concomitant]
     Active Substance: TETRAFERRIC TRICITRATE DECAHYDRATE

REACTIONS (1)
  - Neoplasm malignant [Unknown]
